FAERS Safety Report 9048757 (Version 1)
Quarter: 2013Q1

REPORT INFORMATION
  Report Type: Spontaneous
  Country: US (occurrence: None)
  Receive Date: 20130204
  Receipt Date: 20130204
  Transmission Date: 20140127
  Serious: Yes (Hospitalization)
  Sender: FDA-Public Use
  Company Number: DL2013-0108

PATIENT
  Age: 43 Year
  Sex: Female

DRUGS (3)
  1. MIFEPRISTONE [Suspect]
     Indication: ABORTION INDUCED
     Dosage: 200 MG,  ORAL
     Route: 048
     Dates: start: 20121221
  2. MISOPROSTOL [Concomitant]
     Dosage: 800 MCG,  BUCCAL
     Route: 002
     Dates: start: 20121222
  3. DOXYCYCLINE [Concomitant]

REACTIONS (4)
  - Ruptured ectopic pregnancy [None]
  - Haemorrhage [None]
  - Pain [None]
  - Muscle spasms [None]
